FAERS Safety Report 16031260 (Version 6)
Quarter: 2019Q2

REPORT INFORMATION
  Report Type: Spontaneous
  Country: US (occurrence: US)
  Receive Date: 20190304
  Receipt Date: 20190618
  Transmission Date: 20190711
  Serious: Yes (Hospitalization, Other)
  Sender: FDA-Public Use
  Company Number: US-PFIZER INC-2019082495

PATIENT
  Age: 54 Year
  Sex: Female

DRUGS (12)
  1. SENOKOT [Concomitant]
     Active Substance: SENNOSIDES
  2. TYLENOL [Concomitant]
     Active Substance: ACETAMINOPHEN
  3. DILAUDID [Concomitant]
     Active Substance: HYDROMORPHONE HYDROCHLORIDE
     Dosage: UNK UNK, AS NEEDED
     Route: 042
  4. DEPO-MEDROL [Suspect]
     Active Substance: METHYLPREDNISOLONE ACETATE
     Indication: BACK PAIN
     Dosage: 1 ML, SINGLE
     Route: 008
     Dates: start: 20190208
  5. PERCOCET [OXYCODONE HYDROCHLORIDE;OXYCODONE TEREPHTHALATE;PARACETAMOL] [Concomitant]
     Active Substance: ACETAMINOPHEN\OXYCODONE HYDROCHLORIDE\OXYCODONE TEREPHTHALATE
  6. NORVASC [Concomitant]
     Active Substance: AMLODIPINE BESYLATE
     Dosage: 5 MG, 1X/DAY
  7. FLEXERIL [Concomitant]
     Active Substance: CYCLOBENZAPRINE HYDROCHLORIDE
     Dosage: 10 MG, 2X/DAY
  8. DEPO-MEDROL [Suspect]
     Active Substance: METHYLPREDNISOLONE ACETATE
     Indication: EXTRADURAL ABSCESS
     Dosage: 1 ML, SINGLE
     Route: 008
     Dates: start: 20190208
  9. DEPO-MEDROL [Suspect]
     Active Substance: METHYLPREDNISOLONE ACETATE
     Dosage: 80 ML, UNK  (80 MG,1 ML NVP)
     Route: 008
     Dates: start: 20190208, end: 20190208
  10. OXYCODONE [Concomitant]
     Active Substance: OXYCODONE
  11. OXACILLIN [Concomitant]
     Active Substance: OXACILLIN SODIUM
     Dosage: 2 MG, (Q. 4 HOURS)
     Route: 042
  12. LYRICA [Concomitant]
     Active Substance: PREGABALIN
     Dosage: 150 MG, 3X/DAY

REACTIONS (7)
  - Off label use [Unknown]
  - Localised oedema [Recovered/Resolved]
  - Staphylococcal infection [Recovering/Resolving]
  - Meningitis [Unknown]
  - Product use in unapproved indication [Unknown]
  - Extradural abscess [Recovered/Resolved]
  - Product use issue [Unknown]

NARRATIVE: CASE EVENT DATE: 20190208
